FAERS Safety Report 5838730-7 (Version None)
Quarter: 2008Q3

REPORT INFORMATION
  Report Type: 
  Country: None (occurrence: None)
  Receive Date: 20080808
  Receipt Date: 20080805
  Transmission Date: 20090109
  Serious: Yes (Life-Threatening)
  Sender: FDA-Public Use
  Company Number: D0057018A

PATIENT
  Age: 33 Year
  Sex: Male
  Weight: 87 kg

DRUGS (3)
  1. ARIXTRA [Suspect]
     Dosage: 7.5MG PER DAY
     Route: 058
     Dates: start: 20080305, end: 20080308
  2. FRAXODI [Concomitant]
     Dosage: .8ML PER DAY
     Route: 058
     Dates: start: 20080303, end: 20080305
  3. FALITHROM [Concomitant]
     Route: 048
     Dates: start: 20080307

REACTIONS (4)
  - HEPATOTOXICITY [None]
  - INJECTION SITE IRRITATION [None]
  - PHARMACEUTICAL PRODUCT COMPLAINT [None]
  - TRANSAMINASES INCREASED [None]
